FAERS Safety Report 5815239-8 (Version None)
Quarter: 2008Q3

REPORT INFORMATION
  Report Type: 
  Country: None (occurrence: None)
  Receive Date: 20080718
  Receipt Date: 20080714
  Transmission Date: 20090109
  Serious: Yes (Other)
  Sender: FDA-Public Use
  Company Number: US-BOEHRINGER INGELHEIM GMBH, GERMANY-2008-BP-10960RO

PATIENT
  Sex: Male
  Weight: 100 kg

DRUGS (4)
  1. DIGOXIN [Suspect]
     Indication: CARDIAC FAILURE
     Dates: start: 20080422
  2. CHANTIX [Suspect]
     Indication: SMOKING CESSATION THERAPY
     Dates: start: 20080403
  3. NEXIUM [Concomitant]
  4. INSULIN [Concomitant]

REACTIONS (4)
  - CHEST CRUSHING [None]
  - DRUG INTERACTION [None]
  - DYSPNOEA [None]
  - IMPLANTABLE DEFIBRILLATOR INSERTION [None]
